FAERS Safety Report 13334287 (Version 1)
Quarter: 2017Q1

REPORT INFORMATION
  Report Type: Spontaneous
  Country: FR (occurrence: FR)
  Receive Date: 20170313
  Receipt Date: 20170313
  Transmission Date: 20170428
  Serious: Yes (Hospitalization)
  Sender: FDA-Public Use
  Company Number: FR-009507513-1703FRA002478

PATIENT
  Age: 54 Year
  Sex: Male

DRUGS (12)
  1. AZANTAC [Suspect]
     Active Substance: RANITIDINE HYDROCHLORIDE
     Indication: NEOPLASM MALIGNANT
     Dosage: STRENGTH: 50 MG/2 ML
     Route: 042
     Dates: start: 20170207, end: 20170207
  2. ACETAMINOPHEN. [Concomitant]
     Active Substance: ACETAMINOPHEN
  3. FLUOROURACIL. [Suspect]
     Active Substance: FLUOROURACIL
     Dosage: 5 FU (2000 MG/M2), CYCLICAL
     Route: 042
     Dates: start: 20170207, end: 20170207
  4. ESOMEPRAZOLE [Concomitant]
     Active Substance: ESOMEPRAZOLE
  5. DEXAMETHASONE. [Suspect]
     Active Substance: DEXAMETHASONE
     Indication: NEOPLASM MALIGNANT
     Dosage: 20 MG, ONCE
     Route: 042
     Dates: start: 20170207, end: 20170207
  6. PREGABALIN. [Concomitant]
     Active Substance: PREGABALIN
  7. ACTISKENAN [Concomitant]
     Active Substance: MORPHINE SULFATE
  8. POLARAMINE [Suspect]
     Active Substance: DEXCHLORPHENIRAMINE MALEATE
     Indication: NEOPLASM MALIGNANT
     Dosage: STRENGTH: 5 MG/1 ML
     Route: 042
     Dates: start: 20170207, end: 20170207
  9. CARBOPLATIN. [Suspect]
     Active Substance: CARBOPLATIN
     Indication: NEOPLASM MALIGNANT
     Dosage: 520 MG, CYCLICAL
     Route: 042
     Dates: start: 20170207, end: 20170207
  10. ERBITUX [Suspect]
     Active Substance: CETUXIMAB
     Indication: NEOPLASM MALIGNANT
     Dosage: 500 MG/M2, CYCLICAL
     Route: 042
     Dates: start: 20170207, end: 20170207
  11. IBUPROFEN. [Suspect]
     Active Substance: IBUPROFEN
     Dosage: 400 MG, BID
     Route: 048
  12. SKENAN [Concomitant]
     Active Substance: MORPHINE SULFATE
     Dosage: FORMULATION: PROLONGED-RELEASED MICROGRANULES IN CAPSULE

REACTIONS (1)
  - Diarrhoea [Recovered/Resolved]

NARRATIVE: CASE EVENT DATE: 20170211
